FAERS Safety Report 8026194-7 (Version None)
Quarter: 2012Q1

REPORT INFORMATION
  Report Type: 
  Country: None (occurrence: None)
  Receive Date: 20120105
  Receipt Date: 20110212
  Transmission Date: 20120608
  Serious: No
  Sender: FDA-Public Use
  Company Number: US-ABBOTT-11P-163-0705531-00

PATIENT
  Sex: Female

DRUGS (2)
  1. SYNTHROID [Suspect]
     Indication: PRODUCT USED FOR UNKNOWN INDICATION
     Dosage: ALTERNATE 112MCG AND 125MCG
  2. SYNTHROID [Suspect]
     Indication: PRODUCT USED FOR UNKNOWN INDICATION
     Dosage: ALTERNATE 112MCG AND 125MCG

REACTIONS (3)
  - FEELING ABNORMAL [None]
  - THINKING ABNORMAL [None]
  - BLOOD THYROID STIMULATING HORMONE ABNORMAL [None]
